FAERS Safety Report 17191777 (Version 1)
Quarter: 2019Q4

REPORT INFORMATION
  Report Type: Spontaneous
  Country: SE (occurrence: SE)
  Receive Date: 20191223
  Receipt Date: 20191223
  Transmission Date: 20200122
  Serious: Yes (Hospitalization)
  Sender: FDA-Public Use
  Company Number: SE-PFIZER INC-2019547386

PATIENT
  Age: 59 Year
  Sex: Female

DRUGS (3)
  1. PROPAVAN [Suspect]
     Active Substance: PROPIOMAZINE
     Dosage: 1000 MG, UNK (40 PIECES)
     Route: 048
     Dates: start: 20180219, end: 20180219
  2. ZOLOFT [Suspect]
     Active Substance: SERTRALINE HYDROCHLORIDE
     Dosage: 900 MG, UNK (18 PIECES)
     Dates: start: 20180219, end: 20180219
  3. IMOVANE [Suspect]
     Active Substance: ZOPICLONE
     Dosage: 450 MG, UNK (60 PIECES)
     Dates: start: 20180219, end: 20180219

REACTIONS (3)
  - Intentional overdose [Unknown]
  - Somnolence [Unknown]
  - Intentional self-injury [Unknown]

NARRATIVE: CASE EVENT DATE: 20180219
